FAERS Safety Report 6656308-2 (Version None)
Quarter: 2010Q1

REPORT INFORMATION
  Report Type: 
  Country: None (occurrence: None)
  Receive Date: 20100329
  Receipt Date: 20100319
  Transmission Date: 20100710
  Serious: Yes (Hospitalization)
  Sender: FDA-Public Use
  Company Number: GXKR2010US02545

PATIENT
  Age: 50 Year
  Sex: Female

DRUGS (2)
  1. LABETALOL (NGX) [Suspect]
     Route: 048
  2. LORAZEPAM (NGX) [Suspect]
     Route: 048

REACTIONS (7)
  - ELECTROCARDIOGRAM QRS COMPLEX PROLONGED [None]
  - ENDOTRACHEAL INTUBATION [None]
  - GASTRIC LAVAGE [None]
  - HYPOTHERMIA [None]
  - INTENTIONAL OVERDOSE [None]
  - MECHANICAL VENTILATION [None]
  - UNRESPONSIVE TO STIMULI [None]
